FAERS Safety Report 7153420-9 (Version None)
Quarter: 2010Q4

REPORT INFORMATION
  Report Type: 
  Country: None (occurrence: None)
  Receive Date: 20101213
  Receipt Date: 20101206
  Transmission Date: 20110411
  Serious: Yes (Hospitalization)
  Sender: FDA-Public Use
  Company Number: A0898009A

PATIENT
  Age: 76 Year
  Sex: Male

DRUGS (3)
  1. VOTRIENT [Suspect]
     Dosage: 400MG TWICE PER DAY
     Route: 048
     Dates: start: 20100101, end: 20100924
  2. RADIATION THERAPY [Suspect]
  3. PAIN MEDICATION [Concomitant]

REACTIONS (4)
  - DRUG INEFFECTIVE [None]
  - HAIR COLOUR CHANGES [None]
  - MALIGNANT NEOPLASM PROGRESSION [None]
  - PAIN [None]
